FAERS Safety Report 5742221-1 (Version None)
Quarter: 2008Q2

REPORT INFORMATION
  Report Type: 
  Country: None (occurrence: None)
  Receive Date: 20080519
  Receipt Date: 20080512
  Transmission Date: 20081010
  Serious: Yes (Death, Other)
  Sender: FDA-Public Use
  Company Number: PHHY2008CA01684

PATIENT
  Age: 84 Year
  Sex: Male

DRUGS (14)
  1. ASPIRIN [Concomitant]
     Dosage: 81 MG
  2. VITAMIN B-12 [Concomitant]
     Dosage: 1000 MG
     Route: 048
  3. DIAMICRON [Concomitant]
     Dosage: 30 MG
  4. METFORMIN HCL [Concomitant]
     Dosage: 500 MG
  5. SINEMET [Concomitant]
     Dosage: UNK, BID
  6. SINEMET [Concomitant]
  7. CLONAZEPAM [Concomitant]
     Dosage: 0.5, NIGHT
  8. REMERON [Concomitant]
     Dosage: 30 MG, NIGHT
  9. LACTULOSE [Concomitant]
  10. SENOKOT [Concomitant]
     Dosage: 2 TABLETS NIGHT
     Route: 048
  11. DULCOLAX [Concomitant]
     Dosage: 10 MG
  12. RIVASTIGMINE TARTRATE [Concomitant]
  13. DOMPERIDONE [Concomitant]
  14. EXELON [Suspect]
     Dosage: 3 MG, BID
     Route: 048
     Dates: start: 20071019, end: 20080122

REACTIONS (6)
  - DEMENTIA [None]
  - DEPRESSION [None]
  - HYPERTENSION [None]
  - PARKINSON'S DISEASE [None]
  - PARKINSONISM [None]
  - WEIGHT DECREASED [None]
